FAERS Safety Report 8392671-2 (Version None)
Quarter: 2012Q2

REPORT INFORMATION
  Report Type: 
  Country: None (occurrence: None)
  Receive Date: 20120529
  Receipt Date: 20120516
  Transmission Date: 20120825
  Serious: No
  Sender: FDA-Public Use
  Company Number: US-BAYER-2012-051803

PATIENT

DRUGS (2)
  1. VICODIN [Concomitant]
     Indication: BACK PAIN
  2. NAPROXEN SODIUM [Suspect]
     Indication: BACK PAIN
     Dosage: 1 DF, UNK
     Route: 048

REACTIONS (1)
  - BACK PAIN [None]
